FAERS Safety Report 14819452 (Version 1)
Quarter: 2018Q2

REPORT INFORMATION
  Report Type: Spontaneous
  Country: US (occurrence: US)
  Receive Date: 20180427
  Receipt Date: 20180427
  Transmission Date: 20180711
  Serious: No
  Sender: FDA-Public Use
  Company Number: US-MYLANLABS-2018M1023090

PATIENT
  Sex: Female
  Weight: 76 kg

DRUGS (1)
  1. XULANE [Suspect]
     Active Substance: ETHINYL ESTRADIOL\NORELGESTROMIN
     Indication: VAGINAL HAEMORRHAGE
     Dosage: UNK
     Route: 062
     Dates: start: 20180311

REACTIONS (4)
  - Off label use [Not Recovered/Not Resolved]
  - Wrong technique in product usage process [Not Recovered/Not Resolved]
  - Product quality issue [Unknown]
  - Product adhesion issue [Unknown]
